FAERS Safety Report 10504579 (Version 1)
Quarter: 2014Q4

REPORT INFORMATION
  Report Type: Spontaneous
  Country: US (occurrence: None)
  Receive Date: 20141007
  Receipt Date: 20141007
  Transmission Date: 20150528
  Serious: Yes (Other)
  Sender: FDA-Public Use
  Company Number: None

PATIENT
  Age: 58 Year
  Sex: Female

DRUGS (1)
  1. TECFIDERA [Suspect]
     Active Substance: DIMETHYL FUMARATE
     Indication: MULTIPLE SCLEROSIS
     Route: 048
     Dates: start: 20140626, end: 20140720

REACTIONS (6)
  - Dizziness [None]
  - Blindness [None]
  - Headache [None]
  - Hemiplegia [None]
  - Hypothyroidism [None]
  - Multiple sclerosis [None]

NARRATIVE: CASE EVENT DATE: 20140630
